FAERS Safety Report 12123947 (Version 4)
Quarter: 2016Q4

REPORT INFORMATION
  Report Type: Spontaneous
  Country: US (occurrence: US)
  Receive Date: 20160229
  Receipt Date: 20161207
  Transmission Date: 20170206
  Serious: No
  Sender: FDA-Public Use
  Company Number: US-PFIZER INC-2016102664

PATIENT
  Age: 68 Year
  Sex: Male
  Weight: 98 kg

DRUGS (2)
  1. SUTENT [Suspect]
     Active Substance: SUNITINIB MALATE
     Indication: RENAL CANCER
     Dosage: 50 MG, 1X/DAY (Q DAY)
     Route: 048
     Dates: start: 20160209
  2. SUTENT [Suspect]
     Active Substance: SUNITINIB MALATE
     Indication: RENAL CELL CARCINOMA
     Dosage: 50 MG, CYCLIC (DAY1-28 Q 42 DAYS; DAILY)
     Route: 048
     Dates: start: 20160209

REACTIONS (12)
  - Fatigue [Not Recovered/Not Resolved]
  - Vomiting [Unknown]
  - Hyperaesthesia [Unknown]
  - Blood glucose increased [Unknown]
  - Frequent bowel movements [Unknown]
  - Dry skin [Unknown]
  - Nasal pruritus [Unknown]
  - Alopecia [Unknown]
  - Abdominal discomfort [Unknown]
  - Blood cholesterol increased [Unknown]
  - Sinus disorder [Unknown]
  - Rhinorrhoea [Unknown]
